FAERS Safety Report 7823009-4 (Version None)
Quarter: 2011Q4

REPORT INFORMATION
  Report Type: 
  Country: None (occurrence: None)
  Receive Date: 20111018
  Receipt Date: 20110603
  Transmission Date: 20120403
  Serious: No
  Sender: FDA-Public Use
  Company Number: US-ASTRAZENECA-2011SE34546

PATIENT
  Age: 66 Year
  Sex: Female

DRUGS (3)
  1. ATACAND [Suspect]
     Route: 048
  2. SYMBICORT [Suspect]
     Route: 055
  3. NEXIUM [Suspect]
     Route: 048

REACTIONS (1)
  - MALAISE [None]
